FAERS Safety Report 10882384 (Version 1)
Quarter: 2015Q1

REPORT INFORMATION
  Report Type: Spontaneous
  Country: US (occurrence: US)
  Receive Date: 20150303
  Receipt Date: 20150303
  Transmission Date: 20150721
  Serious: No
  Sender: FDA-Public Use
  Company Number: US-TEVA-540963USA

PATIENT
  Age: 70 Year
  Sex: Male

DRUGS (1)
  1. AZILECT [Suspect]
     Active Substance: RASAGILINE MESYLATE
     Indication: PRODUCT USED FOR UNKNOWN INDICATION

REACTIONS (5)
  - Skin injury [Unknown]
  - Dizziness [Unknown]
  - Fall [Unknown]
  - Vertigo [Unknown]
  - Gait disturbance [Unknown]

NARRATIVE: CASE EVENT DATE: 201501
